FAERS Safety Report 6647477-9 (Version None)
Quarter: 2010Q1

REPORT INFORMATION
  Report Type: 
  Country: None (occurrence: None)
  Receive Date: 20100323
  Receipt Date: 20100323
  Transmission Date: 20100710
  Serious: Yes (Life-Threatening, Hospitalization)
  Sender: FDA-Public Use
  Company Number: None

PATIENT
  Age: 60 Year
  Sex: Male
  Weight: 46 kg

DRUGS (1)
  1. LEVOFLOXACIN [Suspect]
     Indication: INFECTION
     Dosage: 500 MG EVERYDAY IV
     Route: 042
     Dates: start: 20100310, end: 20100317

REACTIONS (2)
  - CONVULSIVE THRESHOLD LOWERED [None]
  - GRAND MAL CONVULSION [None]
